FAERS Safety Report 10587494 (Version 8)
Quarter: 2022Q2

REPORT INFORMATION
  Report Type: Spontaneous
  Country: US (occurrence: US)
  Receive Date: 20141117
  Receipt Date: 20220602
  Transmission Date: 20220721
  Serious: Yes (Other)
  Sender: FDA-Public Use
  Company Number: US-PFIZER INC-2014311717

PATIENT
  Age: 70 Year
  Sex: Female
  Weight: 73.923 kg

DRUGS (1)
  1. PROTONIX [Suspect]
     Active Substance: PANTOPRAZOLE SODIUM
     Indication: Gastrooesophageal reflux disease
     Dosage: 40 MG, 1X/DAY

REACTIONS (11)
  - Neck injury [Not Recovered/Not Resolved]
  - Back injury [Not Recovered/Not Resolved]
  - Arthralgia [Unknown]
  - Memory impairment [Unknown]
  - Fall [Unknown]
  - Cardiac disorder [Unknown]
  - Dysgraphia [Unknown]
  - Musculoskeletal stiffness [Unknown]
  - Pain in extremity [Unknown]
  - Constipation [Unknown]
  - Gait disturbance [Unknown]

NARRATIVE: CASE EVENT DATE: 20170101
